FAERS Safety Report 14430719 (Version 1)
Quarter: 2018Q1

REPORT INFORMATION
  Report Type: Spontaneous
  Country: AU (occurrence: AU)
  Receive Date: 20180124
  Receipt Date: 20180124
  Transmission Date: 20180509
  Serious: Yes (Other)
  Sender: FDA-Public Use
  Company Number: AU-BEH-2018087023

PATIENT
  Age: 76 Year

DRUGS (1)
  1. PRIVIGEN [Suspect]
     Active Substance: HUMAN IMMUNOGLOBULIN G
     Indication: GUILLAIN-BARRE SYNDROME
     Dosage: 190 G, OD
     Route: 065
     Dates: start: 20180118

REACTIONS (6)
  - Hypotension [Unknown]
  - Endotracheal intubation [Unknown]
  - Respiratory failure [Unknown]
  - Anaphylactic reaction [Unknown]
  - Tachycardia [Unknown]
  - Rash [Unknown]

NARRATIVE: CASE EVENT DATE: 20180118
